FAERS Safety Report 16343590 (Version 1)
Quarter: 2019Q2

REPORT INFORMATION
  Report Type: Spontaneous
  Country: US (occurrence: US)
  Receive Date: 20190522
  Receipt Date: 20190522
  Transmission Date: 20190711
  Serious: No
  Sender: FDA-Public Use
  Company Number: US-PFIZER INC-2019218004

PATIENT
  Age: 57 Year
  Sex: Female

DRUGS (1)
  1. XANAX [Suspect]
     Active Substance: ALPRAZOLAM
     Indication: MUSCLE SPASMS
     Dosage: UNK
     Dates: start: 1992

REACTIONS (4)
  - Off label use [Unknown]
  - Drug ineffective for unapproved indication [Unknown]
  - Mood swings [Unknown]
  - Irritability [Unknown]

NARRATIVE: CASE EVENT DATE: 1992
